FAERS Safety Report 19278103 (Version 1)
Quarter: 2021Q2

REPORT INFORMATION
  Report Type: Spontaneous
  Country: CA (occurrence: CA)
  Receive Date: 20210520
  Receipt Date: 20210520
  Transmission Date: 20210717
  Serious: Yes (Other)
  Sender: FDA-Public Use
  Company Number: CA-SA-2021SA162827

PATIENT
  Age: 69 Year
  Sex: Male

DRUGS (2)
  1. FLOMAX [Suspect]
     Active Substance: TAMSULOSIN HYDROCHLORIDE
     Indication: PRODUCT USED FOR UNKNOWN INDICATION
     Dosage: UNK
     Route: 048
  2. FINASTERIDE. [Concomitant]
     Active Substance: FINASTERIDE
     Dosage: UNK

REACTIONS (2)
  - Stevens-Johnson syndrome [Unknown]
  - Stomatitis [Unknown]
